FAERS Safety Report 9445476 (Version 1)
Quarter: 2013Q3

REPORT INFORMATION
  Report Type: Report from Study
  Country: US (occurrence: US)
  Receive Date: 20130807
  Receipt Date: 20130807
  Transmission Date: 20140515
  Serious: Yes (Death)
  Sender: FDA-Public Use
  Company Number: US-PFIZER INC-2013225134

PATIENT
  Age: 51 Year
  Sex: Female

DRUGS (1)
  1. MITOXANTRONE HCL [Suspect]
     Indication: RELAPSING-REMITTING MULTIPLE SCLEROSIS
     Dosage: CUMULATIVE DOSE 11.9 MG/M2
     Route: 042

REACTIONS (1)
  - Meningitis [Fatal]
